FAERS Safety Report 5456694-5 (Version None)
Quarter: 2007Q3

REPORT INFORMATION
  Report Type: 
  Country: None (occurrence: None)
  Receive Date: 20070918
  Receipt Date: 20070906
  Transmission Date: 20080115
  Serious: Yes (Other)
  Sender: FDA-Public Use
  Company Number: US-PFIZER INC-2007075743

PATIENT
  Sex: Female

DRUGS (5)
  1. LYRICA [Suspect]
     Indication: BURNING SENSATION
     Dates: start: 20070801, end: 20070905
  2. LUNESTA [Concomitant]
  3. HYDROCHLOROTHIAZIDE [Concomitant]
  4. ZIAC [Concomitant]
  5. HERBAL PREPARATION [Concomitant]

REACTIONS (1)
  - MUSCULOSKELETAL STIFFNESS [None]
